FAERS Safety Report 5371632-1 (Version None)
Quarter: 2007Q2

REPORT INFORMATION
  Report Type: 
  Country: None (occurrence: None)
  Receive Date: 20070627
  Receipt Date: 20070620
  Transmission Date: 20071010
  Serious: Yes (Other)
  Sender: FDA-Public Use
  Company Number: PHBS2007JP08780

PATIENT
  Age: 58 Year
  Sex: Female

DRUGS (2)
  1. CYCLOSPORINE [Suspect]
     Indication: STEM CELL TRANSPLANT
     Route: 065
  2. METHOTREXATE [Suspect]
     Indication: STEM CELL TRANSPLANT
     Route: 065

REACTIONS (15)
  - ACUTE GRAFT VERSUS HOST DISEASE [None]
  - AREFLEXIA [None]
  - BEDRIDDEN [None]
  - CHRONIC GRAFT VERSUS HOST DISEASE [None]
  - CHRONIC INFLAMMATORY DEMYELINATING POLYRADICULONEUROPATHY [None]
  - CSF PROTEIN INCREASED [None]
  - DIARRHOEA [None]
  - ERYTHEMA [None]
  - GUILLAIN-BARRE SYNDROME [None]
  - HYPOAESTHESIA [None]
  - MUSCULAR WEAKNESS [None]
  - NERVE CONDUCTION STUDIES ABNORMAL [None]
  - QUADRIPLEGIA [None]
  - SEPSIS [None]
  - STENOTROPHOMONAS INFECTION [None]
